FAERS Safety Report 7275748 (Version 2)
Quarter: 2012Q4

REPORT INFORMATION
  Report Type: Report from Study
  Country: JP (occurrence: JP)
  Receive Date: 20100211
  Receipt Date: 20121017
  Transmission Date: 20130627
  Serious: Yes (Hospitalization, Other)
  Sender: FDA-Public Use
  Company Number: PHHY2010JP05312

PATIENT
  Age: 61 Year
  Sex: Female

DRUGS (8)
  1. ICL670A [Suspect]
     Indication: IRON OVERLOAD
     Dosage: 500 mg, daily
     Route: 048
     Dates: start: 20090625, end: 20090708
  2. NEORAL [Suspect]
     Indication: APLASIA PURE RED CELL
     Dosage: 350 mg, daily
     Route: 048
     Dates: start: 20090625, end: 20090902
  3. NEORAL [Suspect]
     Dosage: 300 mg, daily
     Route: 048
     Dates: start: 20090903, end: 20090916
  4. NEORAL [Suspect]
     Dosage: 250 mg, daily
     Route: 048
     Dates: start: 20090917, end: 20091110
  5. NEORAL [Suspect]
     Dosage: 200 mg, daily
     Route: 048
     Dates: start: 20091111, end: 20091223
  6. NEORAL [Suspect]
     Dosage: 250 mg, daily
     Route: 048
     Dates: start: 20091224
  7. DESFERAL [Concomitant]
     Indication: IRON OVERLOAD
     Dosage: 500 mg, UNK
     Route: 030
     Dates: start: 20090305, end: 20090617
  8. RED CELLS CONCENTRATES-LEUKOCYTES REDUCED (RCC-LR) [Concomitant]
     Dosage: 2 U, UNK
     Dates: start: 20090625, end: 20090820

REACTIONS (8)
  - Bacterial infection [Recovered/Resolved]
  - Pyrexia [Recovering/Resolving]
  - Renal failure acute [Recovered/Resolved]
  - Serum ferritin increased [Not Recovered/Not Resolved]
  - Immunosuppressant drug level increased [Unknown]
  - Feeling cold [Unknown]
  - White blood cell count increased [Recovered/Resolved]
  - Blood creatinine increased [Unknown]
